FAERS Safety Report 4598004-1 (Version None)
Quarter: 2005Q1

REPORT INFORMATION
  Report Type: 
  Country: None (occurrence: None)
  Receive Date: 20050209
  Receipt Date: 20041109
  Transmission Date: 20050727
  Serious: Yes (Other)
  Sender: FDA-Public Use
  Company Number: 386054

PATIENT
  Age: 18 Year
  Sex: Female

DRUGS (3)
  1. TORADOL [Suspect]
  2. IBUPROFEN [Suspect]
  3. AMOXICILLIN [Suspect]

REACTIONS (3)
  - GLOMERULONEPHRITIS MINIMAL LESION [None]
  - NEPHROTIC SYNDROME [None]
  - RENAL FAILURE ACUTE [None]
